FAERS Safety Report 16544602 (Version 1)
Quarter: 2019Q3

REPORT INFORMATION
  Report Type: Spontaneous
  Country: US (occurrence: US)
  Receive Date: 20190709
  Receipt Date: 20190709
  Transmission Date: 20191004
  Serious: No
  Sender: FDA-Public Use
  Company Number: US-TEVA-2019-US-1073181

PATIENT
  Sex: Female

DRUGS (5)
  1. RISEDRONATE SODIUM TABLETS [Suspect]
     Active Substance: RISEDRONATE SODIUM
     Indication: OSTEOPOROSIS
     Route: 065
     Dates: start: 20190701
  2. VITAMIN B TABLETS [Concomitant]
     Dosage: MORNING
  3. VITAMIN C CAPSULE [Concomitant]
  4. AMLODIPINE [Concomitant]
     Active Substance: AMLODIPINE BESYLATE
     Dosage: AT NIGHT
  5. CALCIUM WITH VITAMIN D 3 [Concomitant]
     Dosage: 600 MG CALCIUM WITH D3 MORNING AND NIGHT

REACTIONS (3)
  - Bone pain [Recovering/Resolving]
  - Muscle spasms [Recovering/Resolving]
  - Gait disturbance [Recovering/Resolving]

NARRATIVE: CASE EVENT DATE: 20190701
